FAERS Safety Report 5355155-1 (Version None)
Quarter: 2007Q2

REPORT INFORMATION
  Report Type: 
  Country: None (occurrence: None)
  Receive Date: 20070613
  Receipt Date: 20070605
  Transmission Date: 20071010
  Serious: No
  Sender: FDA-Public Use
  Company Number: CL-ELI_LILLY_AND_COMPANY-CL200706001332

PATIENT
  Age: 22 Year
  Sex: Female

DRUGS (5)
  1. ZYPREXA [Suspect]
     Indication: AFFECTIVE DISORDER
     Dosage: 5 MG, DAILY (1/D)
     Route: 048
     Dates: start: 20070101
  2. PREGABALIN [Concomitant]
     Dosage: 150 MG, UNKNOWN
     Route: 065
  3. TRANYLCYPROMINE SULFATE [Concomitant]
     Dosage: 30 MG, UNKNOWN
     Route: 065
  4. CLONAZEPAM [Concomitant]
     Route: 065
  5. OMEGA-3 [Concomitant]
     Route: 065

REACTIONS (3)
  - BLOOD PHOSPHORUS INCREASED [None]
  - LEUKOPENIA [None]
  - NEUTROPENIA [None]
